FAERS Safety Report 4460945-3 (Version None)
Quarter: 2004Q3

REPORT INFORMATION
  Report Type: 
  Country: None (occurrence: None)
  Receive Date: 20040928
  Receipt Date: 20040614
  Transmission Date: 20050211
  Serious: No
  Sender: FDA-Public Use
  Company Number: US-GLAXOSMITHKLINE-A0514532A

PATIENT
  Age: 81 Year
  Sex: Female

DRUGS (8)
  1. ADVAIR DISKUS 100/50 [Suspect]
     Indication: ILL-DEFINED DISORDER
     Dates: start: 20040501, end: 20040501
  2. SPIRONOLACTONE [Concomitant]
  3. WARFARIN SODIUM [Concomitant]
  4. TOPROL-XL [Concomitant]
  5. GEMFIBROZIL [Concomitant]
  6. NEURONTIN [Concomitant]
  7. GLUCOSE [Concomitant]
  8. AVANDIA [Concomitant]

REACTIONS (5)
  - AGEUSIA [None]
  - ANOSMIA [None]
  - DYSPNOEA [None]
  - PSYCHOMOTOR HYPERACTIVITY [None]
  - WEIGHT DECREASED [None]
